FAERS Safety Report 12110467 (Version 1)
Quarter: 2016Q1

REPORT INFORMATION
  Report Type: Report from Study
  Country: JP (occurrence: JP)
  Receive Date: 20160224
  Receipt Date: 20160224
  Transmission Date: 20160526
  Serious: Yes (Death, Life-Threatening, Hospitalization, Other)
  Sender: FDA-Public Use
  Company Number: JP-BRISTOL-MYERS SQUIBB COMPANY-BMS-2016-013572

PATIENT
  Age: 52 Year
  Sex: Female

DRUGS (2)
  1. NIVOLUMAB [Suspect]
     Active Substance: NIVOLUMAB
     Dosage: 2 MG/KG, UNK
     Route: 041
     Dates: start: 20150722, end: 20150722
  2. NIVOLUMAB [Suspect]
     Active Substance: NIVOLUMAB
     Indication: MALIGNANT MELANOMA
     Dosage: 2 MG/KG, UNK
     Route: 041
     Dates: start: 20150624, end: 20150624

REACTIONS (10)
  - Malignant neoplasm progression [Fatal]
  - Therapeutic embolisation [Unknown]
  - Blood alkaline phosphatase increased [Unknown]
  - Ascites [Not Recovered/Not Resolved]
  - Liver carcinoma ruptured [Recovered/Resolved]
  - Aspartate aminotransferase increased [Recovered/Resolved]
  - Gamma-glutamyltransferase increased [Not Recovered/Not Resolved]
  - Tri-iodothyronine free decreased [Unknown]
  - Abdominal cavity drainage [Unknown]
  - Tumour associated fever [Not Recovered/Not Resolved]

NARRATIVE: CASE EVENT DATE: 20150624
